FAERS Safety Report 21694109 (Version 1)
Quarter: 2022Q4

REPORT INFORMATION
  Report Type: Spontaneous
  Country: DK (occurrence: DK)
  Receive Date: 20221207
  Receipt Date: 20221207
  Transmission Date: 20230112
  Serious: Yes (Other)
  Sender: FDA-Public Use
  Company Number: DK-CELLTRION INC.-2022DK020330

PATIENT

DRUGS (1)
  1. RITUXIMAB [Suspect]
     Active Substance: RITUXIMAB
     Indication: Relapsing-remitting multiple sclerosis
     Dosage: RECEIVED 5 DOSES OF RITUXIMAB/ONE DOSE EVERY 6 MONTHS

REACTIONS (2)
  - Vulvovaginal disorder [Recovering/Resolving]
  - Off label use [Unknown]
